FAERS Safety Report 8619319-3 (Version None)
Quarter: 2012Q3

REPORT INFORMATION
  Report Type: 
  Country: None (occurrence: None)
  Receive Date: 20120810
  Receipt Date: 20120802
  Transmission Date: 20120928
  Serious: Yes (Death, Hospitalization)
  Sender: FDA-Public Use
  Company Number: 2012HGS-003672

PATIENT
  Age: 29 Year
  Sex: Female
  Weight: 73.4827 kg

DRUGS (22)
  1. ALBUTEROL [Concomitant]
  2. GLUCOSAMINE (GLUCOSAMINE SULFATE) [Concomitant]
  3. LYRICA [Concomitant]
  4. CALCIUM CARBONATE [Concomitant]
  5. OXYCODONE HCL [Concomitant]
  6. CELLCEPT [Concomitant]
  7. TRAMADOL HCL [Concomitant]
  8. PREDNISONE [Concomitant]
  9. PATANOL [Concomitant]
  10. ACETAMINOPHEN [Concomitant]
  11. SAVELLA [Concomitant]
  12. MULTIVITAN (VIGRAN) (ERGOCALCIFEROL, ASCORBIC ACID, PYRIDOXINE HYDROCH [Concomitant]
  13. METHOTREXATE [Concomitant]
  14. BENLYSTA [Suspect]
     Indication: SYSTEMIC LUPUS ERYTHEMATOSUS
     Dosage: 10 MG/KG, 1 IN 4 WK, INTRAVENOUS DRIP
     Route: 041
     Dates: start: 20120224
  15. BENLYSTA [Suspect]
     Indication: SYSTEMIC LUPUS ERYTHEMATOSUS
     Dosage: 10 MG/KG, 1 IN 4 WK, INTRAVENOUS DRIP
     Route: 041
     Dates: start: 20120127
  16. BENLYSTA [Suspect]
     Indication: SYSTEMIC LUPUS ERYTHEMATOSUS
     Dosage: 10 MG/KG, 1 IN 4 WK, INTRAVENOUS DRIP
     Route: 041
     Dates: start: 20120210
  17. BENLYSTA [Suspect]
     Indication: SYSTEMIC LUPUS ERYTHEMATOSUS
     Dosage: 10 MG/KG, 1 IN 4 WK, INTRAVENOUS DRIP
     Route: 041
     Dates: start: 20120420, end: 20120420
  18. IMITREX [Concomitant]
  19. BENLYSTA [Suspect]
  20. FLOVENT [Concomitant]
  21. DOCUSATE SODIUM [Concomitant]
  22. CYCLOPHOSPHAMIDE [Concomitant]

REACTIONS (18)
  - ABDOMINAL PAIN [None]
  - RESPIRATORY DISTRESS [None]
  - APHASIA [None]
  - CARDIAC FAILURE CONGESTIVE [None]
  - LOSS OF CONSCIOUSNESS [None]
  - PLEURITIC PAIN [None]
  - BUTTERFLY RASH [None]
  - MITRAL VALVE INCOMPETENCE [None]
  - MULTI-ORGAN FAILURE [None]
  - CARDIOMEGALY [None]
  - PERICARDIAL EFFUSION [None]
  - TRICUSPID VALVE INCOMPETENCE [None]
  - DYSPNOEA [None]
  - WHEEZING [None]
  - CARDIOGENIC SHOCK [None]
  - CHEST PAIN [None]
  - PYREXIA [None]
  - DIZZINESS [None]
